FAERS Safety Report 5776755-0 (Version None)
Quarter: 2008Q2

REPORT INFORMATION
  Report Type: 
  Country: None (occurrence: None)
  Receive Date: 20080618
  Receipt Date: 20080310
  Transmission Date: 20081010
  Serious: Yes (Other)
  Sender: FDA-Public Use
  Company Number: US-ASTRAZENECA-2008UW04894

PATIENT
  Age: 80 Year

DRUGS (3)
  1. SYMBICORT [Suspect]
     Dosage: 80/4.5 MCG
     Route: 055
  2. PREDNISONE TAB [Concomitant]
  3. PROVENTIL [Concomitant]

REACTIONS (2)
  - PALPITATIONS [None]
  - TACHYCARDIA [None]
